FAERS Safety Report 9067317 (Version 1)
Quarter: 2013Q1

REPORT INFORMATION
  Report Type: Spontaneous
  Country: US (occurrence: US)
  Receive Date: 20130202
  Receipt Date: 20130202
  Transmission Date: 20140127
  Serious: Yes (Other)
  Sender: FDA-Public Use
  Company Number: US-AMGEN-USASP2013002891

PATIENT
  Age: 79 Year
  Sex: Female
  Weight: 49.89 kg

DRUGS (7)
  1. ENBREL [Suspect]
     Indication: RHEUMATOID ARTHRITIS
     Dosage: 50 MG, WEEKLY
     Route: 058
     Dates: start: 2008, end: 201301
  2. METHOTREXATE [Concomitant]
     Dosage: 2.5 MG, UNK
  3. DILANTIN                           /00017401/ [Concomitant]
     Dosage: 100 MG, UNK
  4. FOLIC ACID [Concomitant]
     Dosage: 1 MG, UNK
  5. MOBIC [Concomitant]
     Dosage: 15 MG, UNK
  6. VITAMIN D /00107901/ [Concomitant]
     Dosage: 1000 UNIT, UNK
  7. DEXILANT [Concomitant]
     Dosage: 30 MG, UNK

REACTIONS (2)
  - Haemoptysis [Recovered/Resolved]
  - Influenza [Recovered/Resolved]
